FAERS Safety Report 8603490-3 (Version None)
Quarter: 2012Q3

REPORT INFORMATION
  Report Type: 
  Country: None (occurrence: None)
  Receive Date: 20120817
  Receipt Date: 20120808
  Transmission Date: 20120928
  Serious: Yes (Hospitalization, Other)
  Sender: FDA-Public Use
  Company Number: US-ELI_LILLY_AND_COMPANY-US201005005439

PATIENT
  Sex: Female
  Weight: 127.89 kg

DRUGS (22)
  1. BYETTA [Suspect]
     Dosage: 5 UG, 2/D
     Route: 058
     Dates: start: 20070101, end: 20070101
  2. XANAX [Concomitant]
     Dosage: 1 MG, AS NEEDED
     Route: 048
  3. NITROGLYCERIN [Concomitant]
     Dosage: 0.4 MG, AS NEEDED
  4. ACTOS [Concomitant]
     Indication: TYPE 2 DIABETES MELLITUS
     Dosage: UNK, QD
     Route: 048
  5. BYETTA [Suspect]
     Dosage: 5 UG, 2/D
     Route: 058
     Dates: start: 20070201, end: 20070101
  6. LEXAPRO [Concomitant]
     Dosage: 20 MG, EACH EVENING
     Route: 048
  7. NEURONTIN [Concomitant]
     Indication: NEUROPATHY PERIPHERAL
     Dosage: 900 MG, 3/D
     Route: 048
  8. BYETTA [Suspect]
     Dosage: 10 UG, 2/D
     Route: 058
     Dates: start: 20070101, end: 20070101
  9. BYETTA [Suspect]
     Dosage: 10 UG, 2/D
     Route: 058
     Dates: start: 20071101, end: 20090101
  10. BYETTA [Suspect]
     Indication: TYPE 2 DIABETES MELLITUS
     Dosage: 5 UG, BID
     Route: 058
     Dates: start: 20060101
  11. COZAAR [Concomitant]
     Dosage: 100 MG, DAILY (1/D)
     Route: 048
  12. METFORMIN HYDROCHLORIDE [Concomitant]
     Dosage: 850 MG, BID
     Route: 048
     Dates: start: 20110101
  13. ACTOPLUS MET [Concomitant]
     Dosage: 850 MG, 2/D
     Route: 048
     Dates: start: 20100101
  14. FOLIC ACID [Concomitant]
     Dosage: 1 MG, DAILY (1/D)
     Route: 048
  15. COUMADIN [Concomitant]
     Dosage: 10 MG, 4/W
     Route: 048
  16. METFORMIN HYDROCHLORIDE [Concomitant]
     Indication: TYPE 2 DIABETES MELLITUS
     Dosage: 1000 MG, BID
     Route: 048
     Dates: end: 20110101
  17. COUMADIN [Concomitant]
     Dosage: 7.5 MG, 3/W
     Route: 048
  18. SIMVASTATIN [Concomitant]
     Indication: BLOOD CHOLESTEROL INCREASED
     Dosage: 40 MG, EACH EVENING
     Route: 048
  19. BYETTA [Suspect]
     Dosage: 10 UG, 2/D
     Route: 058
     Dates: start: 20100301
  20. ICAR [Concomitant]
     Dosage: 250 MG, 2/D
     Route: 048
  21. NEXIUM [Concomitant]
     Dosage: 40 MG, AS NEEDED
  22. LOSARTAN POTASSIUM [Concomitant]
     Indication: CARDIAC DISORDER
     Dosage: UNK
     Route: 048

REACTIONS (14)
  - NEPHROLITHIASIS [None]
  - ABDOMINAL PAIN UPPER [None]
  - DECREASED APPETITE [None]
  - RENAL DISORDER [None]
  - FLUID INTAKE REDUCED [None]
  - NEUROPATHY PERIPHERAL [None]
  - LABORATORY TEST ABNORMAL [None]
  - BACK PAIN [None]
  - NAUSEA [None]
  - PULMONARY EMBOLISM [None]
  - FOOD INTOLERANCE [None]
  - WEIGHT DECREASED [None]
  - URETHRAL OBSTRUCTION [None]
  - CATHETERISATION CARDIAC [None]
